FAERS Safety Report 16889658 (Version 1)
Quarter: 2019Q4

REPORT INFORMATION
  Report Type: Spontaneous
  Country: US (occurrence: US)
  Receive Date: 20190810
  Receipt Date: 20190810
  Transmission Date: 20200122
  Serious: No
  Sender: FDA-Public Use
  Company Number: None

PATIENT
  Age: 24 Year
  Sex: Female
  Weight: 123.9 kg

DRUGS (5)
  1. DAUNORUBICIN [Suspect]
     Active Substance: DAUNORUBICIN
     Dates: end: 20190805
  2. CYTARABINE. [Suspect]
     Active Substance: CYTARABINE
     Dates: end: 20190729
  3. DEXAMETHASONE. [Suspect]
     Active Substance: DEXAMETHASONE
     Dates: end: 20190804
  4. VINCRISTINE SULFATE. [Suspect]
     Active Substance: VINCRISTINE SULFATE
     Dates: end: 20190805
  5. ONCASPAR [Suspect]
     Active Substance: PEGASPARGASE
     Dosage: ?          OTHER DOSE:3750 UNIT;?
     Dates: end: 20190801

REACTIONS (3)
  - Subclavian vein thrombosis [None]
  - Axillary vein thrombosis [None]
  - Dyspnoea [None]

NARRATIVE: CASE EVENT DATE: 20190806
